FAERS Safety Report 11539315 (Version 2)
Quarter: 2015Q4

REPORT INFORMATION
  Report Type: Spontaneous
  Country: US (occurrence: US)
  Receive Date: 20150923
  Receipt Date: 20151130
  Transmission Date: 20160304
  Serious: No
  Sender: FDA-Public Use
  Company Number: US-PFIZER INC-2015315775

PATIENT
  Age: 48 Year
  Sex: Female
  Weight: 64 kg

DRUGS (4)
  1. QUERCETIN [Concomitant]
     Active Substance: QUERCETIN
     Dosage: UNK
  2. GENOTROPIN MQ [Suspect]
     Active Substance: SOMATROPIN
     Indication: HORMONE THERAPY
     Dosage: 0.25 ML, DAILY (UNDER THE SKIN)
     Route: 058
     Dates: start: 201505
  3. GENOTROPIN MQ [Suspect]
     Active Substance: SOMATROPIN
     Indication: DWARFISM
     Dosage: 0.4 MG, DAILY
     Route: 058
     Dates: start: 20150819
  4. QUERCETIN DIHYDRATE [Concomitant]

REACTIONS (3)
  - Injection site haemorrhage [Unknown]
  - Influenza like illness [Unknown]
  - Injection site pain [Unknown]
